FAERS Safety Report 8668325 (Version 3)
Quarter: 2015Q2

REPORT INFORMATION
  Report Type: Report from Study
  Country: US (occurrence: US)
  Receive Date: 20120717
  Receipt Date: 20150626
  Transmission Date: 20150821
  Serious: Yes (Death)
  Sender: FDA-Public Use
  Company Number: US-ROCHE-1087487

PATIENT
  Sex: Male

DRUGS (12)
  1. SIMVASTATIN. [Concomitant]
     Active Substance: SIMVASTATIN
  2. NITROGLYCERIN. [Concomitant]
     Active Substance: NITROGLYCERIN
  3. WARFARIN [Concomitant]
     Active Substance: WARFARIN
  4. VICODIN [Concomitant]
     Active Substance: ACETAMINOPHEN\HYDROCODONE BITARTRATE
  5. LUCENTIS [Suspect]
     Active Substance: RANIBIZUMAB
     Indication: DIABETIC RETINAL OEDEMA
     Route: 065
     Dates: start: 20090302, end: 20090420
  6. LUCENTIS [Suspect]
     Active Substance: RANIBIZUMAB
     Route: 050
  7. CITALOPRAM [Concomitant]
     Active Substance: CITALOPRAM HYDROBROMIDE
  8. FOLIC ACID. [Concomitant]
     Active Substance: FOLIC ACID
  9. LEVOTHYROXINE [Concomitant]
     Active Substance: LEVOTHYROXINE
  10. ALBUTEROL. [Concomitant]
     Active Substance: ALBUTEROL
  11. ALLOPURINOL. [Concomitant]
     Active Substance: ALLOPURINOL
     Route: 065
  12. IBUPROFEN. [Concomitant]
     Active Substance: IBUPROFEN

REACTIONS (4)
  - Death [Fatal]
  - Hypertension [Unknown]
  - Off label use [Unknown]
  - Ophthalmological examination abnormal [Unknown]
